FAERS Safety Report 6753292-8 (Version None)
Quarter: 2010Q2

REPORT INFORMATION
  Report Type: 
  Country: None (occurrence: None)
  Receive Date: 20100603
  Receipt Date: 20100520
  Transmission Date: 20101027
  Serious: Yes (Other)
  Sender: FDA-Public Use
  Company Number: ES-ELI_LILLY_AND_COMPANY-ES201005005940

PATIENT
  Sex: Female

DRUGS (6)
  1. FORTEO [Suspect]
     Indication: OSTEOPOROSIS
     Dosage: 20 UG, DAILY (1/D)
     Route: 058
     Dates: start: 20090501
  2. COZAAR [Concomitant]
     Indication: HYPERTENSION
     Dosage: 0.5 MG, DAILY (1/D)
     Route: 048
  3. SERETIDE [Concomitant]
     Indication: RESPIRATORY DISORDER
     Dosage: UNK, UNKNOWN
     Route: 055
  4. DONULIDE [Concomitant]
     Dosage: UNK, UNKNOWN
     Route: 048
  5. HEPAN [Concomitant]
     Indication: ANTICOAGULANT THERAPY
     Dosage: UNK, UNKNOWN
     Route: 058
     Dates: start: 20100417
  6. NYSTATIN [Concomitant]
     Indication: SLEEP DISORDER
     Dosage: UNK, UNKNOWN
     Route: 048

REACTIONS (2)
  - ACCIDENT [None]
  - ANKLE FRACTURE [None]
